FAERS Safety Report 16158965 (Version 3)
Quarter: 2019Q2

REPORT INFORMATION
  Report Type: Spontaneous
  Country: JP (occurrence: JP)
  Receive Date: 20190404
  Receipt Date: 20190603
  Transmission Date: 20190711
  Serious: Yes (Other)
  Sender: FDA-Public Use
  Company Number: JP-ABBVIE-19P-087-2728611-00

PATIENT
  Age: 30 Year
  Sex: Female

DRUGS (4)
  1. PREDNISOLONE. [Concomitant]
     Active Substance: PREDNISOLONE
     Indication: TAKAYASU^S ARTERITIS
     Route: 048
     Dates: start: 201708
  2. PREDNISOLONE. [Concomitant]
     Active Substance: PREDNISOLONE
     Dates: start: 201805
  3. HUMIRA [Suspect]
     Active Substance: ADALIMUMAB
     Indication: COLITIS ULCERATIVE
     Route: 058
     Dates: start: 201804, end: 201805
  4. HUMIRA [Suspect]
     Active Substance: ADALIMUMAB
     Indication: COLITIS

REACTIONS (1)
  - Takayasu^s arteritis [Recovered/Resolved]

NARRATIVE: CASE EVENT DATE: 201804
